FAERS Safety Report 4523775-X (Version None)
Quarter: 2004Q4

REPORT INFORMATION
  Report Type: 
  Country: None (occurrence: None)
  Receive Date: 20041119
  Receipt Date: 20040917
  Transmission Date: 20050328
  Serious: No
  Sender: FDA-Public Use
  Company Number: PHEH2004US09208

PATIENT
  Age: 40 Year
  Sex: Female

DRUGS (1)
  1. ZELNORM [Suspect]
     Indication: IRRITABLE BOWEL SYNDROME
     Dosage: 6 MG, BID, ORAL
     Route: 048
     Dates: start: 20040601

REACTIONS (7)
  - ABDOMINAL RIGIDITY [None]
  - BREAST TENDERNESS [None]
  - CONDITION AGGRAVATED [None]
  - FLATULENCE [None]
  - MENORRHAGIA [None]
  - MUSCLE TWITCHING [None]
  - OLIGOMENORRHOEA [None]
